FAERS Safety Report 22296175 (Version 1)
Quarter: 2023Q2

REPORT INFORMATION
  Report Type: Spontaneous
  Country: None (occurrence: DE)
  Receive Date: 20230508
  Receipt Date: 20230508
  Transmission Date: 20230722
  Serious: Yes (Other)
  Sender: FDA-Public Use
  Company Number: DE-Hill Dermaceuticals, Inc.-2141237

PATIENT
  Sex: Male

DRUGS (3)
  1. TOLAK [Suspect]
     Active Substance: FLUOROURACIL
     Indication: Actinic keratosis
     Route: 061
  2. METFORMIN [Concomitant]
     Active Substance: METFORMIN HYDROCHLORIDE
     Route: 065
  3. Statine [Concomitant]
     Route: 065

REACTIONS (5)
  - Facial paralysis [Recovering/Resolving]
  - Blister [Recovering/Resolving]
  - Ulcer [Recovering/Resolving]
  - Product administered at inappropriate site [None]
  - Off label use [None]
